FAERS Safety Report 13936504 (Version 1)
Quarter: 2017Q3

REPORT INFORMATION
  Report Type: Spontaneous
  Country: US (occurrence: US)
  Receive Date: 20170905
  Receipt Date: 20170905
  Transmission Date: 20171127
  Serious: No
  Sender: FDA-Public Use
  Company Number: US-GLAXOSMITHKLINE-US2017135489

PATIENT
  Age: 86 Year
  Sex: Female

DRUGS (8)
  1. PLAVIX [Concomitant]
     Active Substance: CLOPIDOGREL BISULFATE
  2. PROTONIX [Concomitant]
     Active Substance: PANTOPRAZOLE SODIUM
  3. ASPIRIN (BABY) [Concomitant]
     Active Substance: ASPIRIN
  4. TOPROL XL [Concomitant]
     Active Substance: METOPROLOL SUCCINATE
  5. INCRUSE ELLIPTA [Suspect]
     Active Substance: UMECLIDINIUM BROMIDE
     Indication: CHRONIC OBSTRUCTIVE PULMONARY DISEASE
     Dosage: 1 PUFF(S), 1D
     Route: 055
     Dates: start: 201707
  6. VALSARTAN. [Concomitant]
     Active Substance: VALSARTAN
  7. TYLENOL [Concomitant]
     Active Substance: ACETAMINOPHEN
  8. DULERA [Concomitant]
     Active Substance: FORMOTEROL FUMARATE DIHYDRATE\MOMETASONE FUROATE

REACTIONS (7)
  - Headache [Recovered/Resolved]
  - Enlarged uvula [Recovered/Resolved]
  - Nasal congestion [Not Recovered/Not Resolved]
  - Multiple allergies [Not Recovered/Not Resolved]
  - Labelled drug-disease interaction medication error [Recovered/Resolved]
  - Pharyngeal oedema [Recovered/Resolved]
  - Rhinorrhoea [Not Recovered/Not Resolved]

NARRATIVE: CASE EVENT DATE: 20170817
